FAERS Safety Report 4768657-3 (Version None)
Quarter: 2005Q3

REPORT INFORMATION
  Report Type: 
  Country: None (occurrence: None)
  Receive Date: 20050913
  Receipt Date: 20050901
  Transmission Date: 20060218
  Serious: Yes (Other)
  Sender: FDA-Public Use
  Company Number: 27385

PATIENT
  Age: 62 Year
  Sex: Male

DRUGS (3)
  1. ALDARA [Suspect]
     Indication: MALIGNANT MELANOMA
     Dosage: 1 SACHET, 3 IN 1 WEEK, TOPICAL
     Route: 061
     Dates: start: 20050415, end: 20050427
  2. ALDARA [Suspect]
     Indication: MALIGNANT MELANOMA
     Dosage: 1 SACHET, 3 IN 1 WEEK, TOPICAL
     Route: 061
     Dates: start: 20050601
  3. LISINOPRIL [Concomitant]

REACTIONS (5)
  - APPLICATION SITE IRRITATION [None]
  - APPLICATION SITE OEDEMA [None]
  - APPLICATION SITE PAIN [None]
  - POSTOPERATIVE WOUND COMPLICATION [None]
  - WOUND DEHISCENCE [None]
